FAERS Safety Report 5897796-9 (Version None)
Quarter: 2008Q3

REPORT INFORMATION
  Report Type: 
  Country: None (occurrence: None)
  Receive Date: 20080925
  Receipt Date: 20080916
  Transmission Date: 20090109
  Serious: Yes (Hospitalization)
  Sender: FDA-Public Use
  Company Number: US-ABBOTT-08P-163-0476556-00

PATIENT
  Sex: Male
  Weight: 75.818 kg

DRUGS (5)
  1. DEPAKOTE ER [Suspect]
     Indication: CONVULSION PROPHYLAXIS
     Route: 048
     Dates: start: 20070101, end: 20070101
  2. DEPAKOTE ER [Suspect]
  3. DEPAKOTE [Suspect]
     Indication: CONVULSION
     Route: 048
     Dates: start: 19970306, end: 20070101
  4. DEPAKOTE [Suspect]
     Dates: start: 20070101
  5. LEVETIRACETAM [Concomitant]
     Indication: CONVULSION
     Route: 048
     Dates: start: 20050101

REACTIONS (7)
  - ABDOMINAL PAIN [None]
  - ANOREXIA [None]
  - CHOLECYSTECTOMY [None]
  - DIARRHOEA [None]
  - FEAR [None]
  - PETIT MAL EPILEPSY [None]
  - WEIGHT INCREASED [None]
